FAERS Safety Report 21447113 (Version 1)
Quarter: 2022Q4

REPORT INFORMATION
  Report Type: Spontaneous
  Country: ES (occurrence: ES)
  Receive Date: 20221012
  Receipt Date: 20221012
  Transmission Date: 20230112
  Serious: Yes (Other)
  Sender: FDA-Public Use
  Company Number: ES-KRKA-ES2022K11756LIT

PATIENT
  Age: 5 Year
  Sex: Male

DRUGS (6)
  1. AZITHROMYCIN [Suspect]
     Active Substance: AZITHROMYCIN
     Indication: Cat scratch disease
     Dosage: 10 MG/KG, PER DAY (ON THE FIRST DAY)
  2. AZITHROMYCIN [Suspect]
     Active Substance: AZITHROMYCIN
     Dosage: 5 MG/KG, PER DAY
  3. GENTAMICIN [Suspect]
     Active Substance: GENTAMICIN
     Indication: Cat scratch disease
     Dosage: 3 MG/KG, PER DAY
     Route: 051
  4. RIFAMPIN [Suspect]
     Active Substance: RIFAMPIN
     Indication: Cat scratch disease
     Dosage: 20 MG/KG, PER DAY
     Route: 048
  5. PREDNISONE [Concomitant]
     Active Substance: PREDNISONE
     Dosage: 1 MG/KG, 1X/DAY
     Route: 048
  6. COTRIMOXAZOLE [Concomitant]
     Active Substance: SULFAMETHOXAZOLE\TRIMETHOPRIM
     Dosage: UNK
     Route: 048

REACTIONS (8)
  - Liver injury [Unknown]
  - Hepatosplenic abscess [Unknown]
  - C-reactive protein increased [Unknown]
  - Splenic lesion [Unknown]
  - Lymphadenopathy [Unknown]
  - Itching scar [Unknown]
  - Serology positive [Unknown]
  - Pyrexia [Unknown]
